FAERS Safety Report 16082711 (Version 2)
Quarter: 2019Q2

REPORT INFORMATION
  Report Type: Spontaneous
  Country: GB (occurrence: GB)
  Receive Date: 20190318
  Receipt Date: 20190404
  Transmission Date: 20190711
  Serious: Yes (Congenital Anomaly)
  Sender: FDA-Public Use
  Company Number: GB-TEVA-2019-GB-1024505

PATIENT
  Sex: Male

DRUGS (10)
  1. COCODAMOL [Suspect]
     Active Substance: ACETAMINOPHEN\CODEINE PHOSPHATE
     Route: 064
  2. ACETYLSALICYLIC ACID [Suspect]
     Active Substance: ASPIRIN
     Dosage: 150 MILLIGRAM DAILY;
     Route: 064
  3. FLUCLOXACILLIN [Suspect]
     Active Substance: FLUCLOXACILLIN
     Dosage: 2000 MILLIGRAM DAILY;
     Route: 064
     Dates: start: 20180619, end: 20180626
  4. HYOSCINE BUTYLBROMIDE [Suspect]
     Active Substance: BUTYLSCOPOLAMINE BROMIDE
     Route: 064
     Dates: start: 20181213, end: 20181223
  5. FIASP [Suspect]
     Active Substance: INSULIN ASPART
     Route: 064
  6. FOLIC ACID. [Suspect]
     Active Substance: FOLIC ACID
     Route: 064
     Dates: start: 20180615, end: 2018
  7. TOUJEO [Suspect]
     Active Substance: INSULIN GLARGINE
     Route: 064
  8. RANITIDINE. [Suspect]
     Active Substance: RANITIDINE
     Dosage: 300 MILLIGRAM DAILY;
     Route: 064
     Dates: start: 20181215, end: 20181223
  9. TINZAPARIN [Suspect]
     Active Substance: TINZAPARIN
     Route: 064
  10. RENNIE [CALCIUM CARBONATE] [Suspect]
     Active Substance: CALCIUM CARBONATE
     Route: 064

REACTIONS (5)
  - Foetal hypokinesia [Unknown]
  - Genitalia external ambiguous [Not Recovered/Not Resolved]
  - Neonatal respiratory depression [Unknown]
  - Foetal exposure during delivery [Unknown]
  - Congenital bladder anomaly [Not Recovered/Not Resolved]

NARRATIVE: CASE EVENT DATE: 20181219
